FAERS Safety Report 20678752 (Version 1)
Quarter: 2022Q2

REPORT INFORMATION
  Report Type: Spontaneous
  Country: US (occurrence: None)
  Receive Date: 20220404
  Receipt Date: 20220404
  Transmission Date: 20220720
  Serious: Yes (Other)
  Sender: FDA-Public Use
  Company Number: None

PATIENT
  Age: 23 Year
  Sex: Male
  Weight: 84.37 kg

DRUGS (1)
  1. GUANFACINE [Suspect]
     Active Substance: GUANFACINE
     Indication: Attention deficit hyperactivity disorder
     Dosage: OTHER FREQUENCY : QAM;?
     Route: 048
     Dates: start: 20180109, end: 20181024

REACTIONS (5)
  - Irritability [None]
  - Psychomotor hyperactivity [None]
  - Impulsive behaviour [None]
  - Aggression [None]
  - Product substitution issue [None]

NARRATIVE: CASE EVENT DATE: 20180109
